FAERS Safety Report 7552211-4 (Version None)
Quarter: 2011Q2

REPORT INFORMATION
  Report Type: 
  Country: None (occurrence: None)
  Receive Date: 20110616
  Receipt Date: 20110613
  Transmission Date: 20111010
  Serious: Yes (Hospitalization)
  Sender: FDA-Public Use
  Company Number: US-MERCK-1106USA01600

PATIENT
  Age: 79 Year
  Sex: Male

DRUGS (2)
  1. SINEMET [Suspect]
     Dosage: FOUR TIMES PER DAY
     Route: 048
     Dates: start: 20101201
  2. SINEMET [Suspect]
     Route: 048

REACTIONS (2)
  - OVERDOSE [None]
  - RHABDOMYOLYSIS [None]
